FAERS Safety Report 5379716-9 (Version None)
Quarter: 2007Q3

REPORT INFORMATION
  Report Type: 
  Country: None (occurrence: None)
  Receive Date: 20070706
  Receipt Date: 20070704
  Transmission Date: 20080115
  Serious: Yes (Death)
  Sender: FDA-Public Use
  Company Number: PHBS2007JP08571

PATIENT
  Age: 13 Year
  Sex: Female

DRUGS (4)
  1. METHOTREXATE [Suspect]
     Indication: CORD BLOOD TRANSPLANT THERAPY
     Route: 065
  2. SANDIMMUNE [Suspect]
     Indication: CORD BLOOD TRANSPLANT THERAPY
     Route: 042
  3. ETOPOSIDE [Concomitant]
     Dosage: 35 MG/KG FOR 36 H
     Route: 042
  4. CYCLOPHOSPHAMIDE [Concomitant]
     Dosage: 120 MG/KG

REACTIONS (1)
  - MALIGNANT NEOPLASM PROGRESSION [None]
